FAERS Safety Report 6102363-8 (Version None)
Quarter: 2009Q1

REPORT INFORMATION
  Report Type: 
  Country: None (occurrence: None)
  Receive Date: 20090304
  Receipt Date: 20090227
  Transmission Date: 20090719
  Serious: Yes (Death, Hospitalization, Other)
  Sender: FDA-Public Use
  Company Number: GB-ABBOTT-09P-167-0559454-00

PATIENT
  Sex: Female
  Weight: 61 kg

DRUGS (3)
  1. HUMIRA [Suspect]
     Indication: RHEUMATOID ARTHRITIS
     Route: 058
     Dates: start: 20050812, end: 20070705
  2. DICLOFENAC [Concomitant]
     Indication: DRUG USE FOR UNKNOWN INDICATION
     Dates: start: 20050823
  3. FOLIC ACID [Concomitant]
     Indication: DRUG USE FOR UNKNOWN INDICATION
     Dates: start: 20050823

REACTIONS (25)
  - ASTHENIA [None]
  - BACK PAIN [None]
  - CELLULITIS [None]
  - CUSHINGOID [None]
  - DECUBITUS ULCER [None]
  - EMOTIONAL DISTRESS [None]
  - GRIP STRENGTH DECREASED [None]
  - JOINT RANGE OF MOTION DECREASED [None]
  - LEG AMPUTATION [None]
  - LOCALISED INFECTION [None]
  - LOWER RESPIRATORY TRACT INFECTION [None]
  - MOBILITY DECREASED [None]
  - MOTOR DYSFUNCTION [None]
  - PAIN [None]
  - PERICARDIAL EFFUSION [None]
  - RENAL FAILURE ACUTE [None]
  - RHEUMATOID ARTHRITIS [None]
  - SEPSIS [None]
  - SKIN ULCER [None]
  - STEROID THERAPY [None]
  - URINARY TRACT INFECTION [None]
  - VAGINAL DISCHARGE [None]
  - VULVOVAGINAL DRYNESS [None]
  - WOUND COMPLICATION [None]
  - WOUND INFECTION [None]
